FAERS Safety Report 9352925 (Version 1)
Quarter: 2013Q2

REPORT INFORMATION
  Report Type: Spontaneous
  Country: US (occurrence: None)
  Receive Date: 20130614
  Receipt Date: 20130614
  Transmission Date: 20140414
  Serious: Yes (Hospitalization, Other)
  Sender: FDA-Public Use
  Company Number: None

PATIENT
  Age: 61 Year
  Sex: Female
  Weight: 82.7 kg

DRUGS (3)
  1. PARAFON FORTE [Suspect]
     Indication: TEMPOROMANDIBULAR JOINT SYNDROME
     Dates: start: 20130506
  2. PARAFON FORTE [Suspect]
     Indication: MUSCLE SPASMS
     Dates: start: 20130506
  3. IBUPROFEN [Concomitant]

REACTIONS (4)
  - Cholestasis [None]
  - Jaundice [None]
  - Cholangitis [None]
  - Dilatation intrahepatic duct acquired [None]
